FAERS Safety Report 13190812 (Version 1)
Quarter: 2017Q1

REPORT INFORMATION
  Report Type: Spontaneous
  Country: US (occurrence: US)
  Receive Date: 20170206
  Receipt Date: 20170206
  Transmission Date: 20170428
  Serious: Yes (Hospitalization, Other)
  Sender: FDA-Public Use
  Company Number: US-AMGEN-USASP2017016584

PATIENT
  Age: 4 Year
  Sex: Male
  Weight: 18 kg

DRUGS (34)
  1. CYCLOPHOSPHAMIDE. [Concomitant]
     Active Substance: CYCLOPHOSPHAMIDE
     Dosage: UNK
     Dates: start: 20161212
  2. POTASSIUM CHLORIDE. [Concomitant]
     Active Substance: POTASSIUM CHLORIDE
     Dosage: 10 MEQ, QD
  3. FIBRINOGEN [Concomitant]
     Active Substance: FIBRINOGEN HUMAN
     Dosage: UNK
     Dates: start: 20161219
  4. SULFAMETHOXAZOLE\TRIMETHOPRIM [Concomitant]
     Active Substance: SULFAMETHOXAZOLE\TRIMETHOPRIM
     Dosage: 44 MG, UNK
     Route: 058
  5. ATIVAN [Concomitant]
     Active Substance: LORAZEPAM
     Dosage: UNK PRN
  6. OXYCODONE [Concomitant]
     Active Substance: OXYCODONE
     Indication: PAIN
     Dosage: 1.5 MG, Q6H
     Route: 048
  7. CEFEPIME [Concomitant]
     Active Substance: CEFEPIME HYDROCHLORIDE
     Dosage: 900 MG, Q8H
     Route: 042
  8. BIOTENE NOS [Concomitant]
     Active Substance: CETYLPYRIDINIUM CHLORIDE OR SODIUM FLUORIDE OR SODIUM MONOFLUOROPHOSPHATE OR GLUCOSE OXIDASE\LACTOFERRIN\LACTOPEROXIDASE BOVINE\LYSOZYME
     Dosage: 10 ML, TID
     Route: 048
     Dates: end: 20161209
  9. NUTREN JUNIOR [Concomitant]
     Dosage: 50 UNK (50 M/LHR) 10 HOURS
  10. FAMOTIDINE. [Concomitant]
     Active Substance: FAMOTIDINE
     Dosage: 5 MG, QD
     Route: 042
  11. POLYETHYLENE GLYCOL 3350. [Concomitant]
     Active Substance: POLYETHYLENE GLYCOL 3350
     Indication: CONSTIPATION
     Dosage: 8.5 G, BID
     Route: 048
  12. FLUCONAZOLE. [Concomitant]
     Active Substance: FLUCONAZOLE
     Dosage: 210 MG, UNK
     Dates: start: 2016
  13. LIDOCAINE AND PRILOCAINE [Concomitant]
     Active Substance: LIDOCAINE\PRILOCAINE
     Dosage: UNK (2-2.5%) 1 APPLICATION
     Route: 061
  14. SULFAMETHOXAZOLE\TRIMETHOPRIM [Concomitant]
     Active Substance: SULFAMETHOXAZOLE\TRIMETHOPRIM
     Dosage: 5 ML, BID
     Route: 048
  15. LANSOPRAZOLE. [Concomitant]
     Active Substance: LANSOPRAZOLE
     Dosage: UNK
  16. BACTRIM [Concomitant]
     Active Substance: SULFAMETHOXAZOLE\TRIMETHOPRIM
     Dosage: UNK UNK, BID
  17. MORPHINE [Concomitant]
     Active Substance: MORPHINE
     Indication: PAIN
     Dosage: 1.5 MG, Q4H
     Route: 042
  18. CARFILZOMIB [Suspect]
     Active Substance: CARFILZOMIB
     Indication: ACUTE MYELOID LEUKAEMIA
     Dosage: UNK
     Route: 065
     Dates: start: 20161212
  19. ARA-C [Concomitant]
     Active Substance: CYTARABINE
     Indication: PRODUCT USED FOR UNKNOWN INDICATION
     Dosage: UNK
     Route: 065
  20. ONDANSETRON [Concomitant]
     Active Substance: ONDANSETRON
     Dosage: 2.5 ML, Q6H
     Route: 048
  21. MELATONIN [Concomitant]
     Active Substance: MELATONIN
     Indication: INSOMNIA
     Dosage: 1 MG, QHS PRN
  22. ETOPOSIDE. [Concomitant]
     Active Substance: ETOPOSIDE
     Dosage: UNK
     Dates: start: 20161212
  23. FLUCONAZOLE. [Concomitant]
     Active Substance: FLUCONAZOLE
     Indication: WEIGHT INCREASED
     Dosage: 4.5 ML, QD
     Dates: end: 20161209
  24. DEXAMETHASONE. [Concomitant]
     Active Substance: DEXAMETHASONE
     Dosage: 0.1 MG/KG, QD
     Route: 042
     Dates: start: 20161212
  25. FILGRASTIM [Concomitant]
     Active Substance: FILGRASTIM
     Dosage: 90 MUG, UNK
     Route: 058
  26. ALLOPURINOL. [Concomitant]
     Active Substance: ALLOPURINOL
     Dosage: 300 MG/M2, Q8H (DIVIDED Q8H=70 MG Q8H)
  27. ZOFRAN [Concomitant]
     Active Substance: ONDANSETRON HYDROCHLORIDE
     Dosage: UNK
  28. BENADRYL [Concomitant]
     Active Substance: DIPHENHYDRAMINE HYDROCHLORIDE
     Dosage: UNK
  29. ACETAMINOPHEN. [Concomitant]
     Active Substance: ACETAMINOPHEN
     Dosage: 180 MG, Q4H
     Route: 048
  30. MIRALAX [Concomitant]
     Active Substance: POLYETHYLENE GLYCOL 3350
     Indication: CONSTIPATION
     Dosage: 8.5 G, Q12H
     Route: 048
  31. VINORELBINE [Concomitant]
     Active Substance: VINORELBINE\VINORELBINE TARTRATE
     Dosage: 14.4 MG, UNK
     Route: 042
  32. DIPHENHYDRAMINE. [Concomitant]
     Active Substance: DIPHENHYDRAMINE
     Dosage: 9 MG, Q6H
     Route: 042
  33. METRONIDAZOLE. [Concomitant]
     Active Substance: METRONIDAZOLE
     Dosage: 125 MG, Q6H
     Route: 048
  34. LORAZEPAM. [Concomitant]
     Active Substance: LORAZEPAM
     Dosage: 1.5 MG, Q6H
     Route: 042

REACTIONS (6)
  - Pancytopenia [Unknown]
  - Immunodeficiency [Unknown]
  - Hyperphosphataemia [Unknown]
  - Abdominal pain [Unknown]
  - Tumour lysis syndrome [Unknown]
  - Off label use [Unknown]
